FAERS Safety Report 4602675-0 (Version None)
Quarter: 2005Q1

REPORT INFORMATION
  Report Type: 
  Country: None (occurrence: None)
  Receive Date: 20050307
  Receipt Date: 20050221
  Transmission Date: 20050727
  Serious: Yes (Other)
  Sender: FDA-Public Use
  Company Number: 2005008221

PATIENT
  Age: 2 Year
  Sex: Male
  Weight: 11.4 kg

DRUGS (1)
  1. VFEND [Suspect]
     Indication: SHORT-BOWEL SYNDROME

REACTIONS (1)
  - IDIOPATHIC THROMBOCYTOPENIC PURPURA [None]
